FAERS Safety Report 4884499-2 (Version None)
Quarter: 2006Q1

REPORT INFORMATION
  Report Type: 
  Country: None (occurrence: None)
  Receive Date: 20060117
  Receipt Date: 20060105
  Transmission Date: 20060701
  Serious: Yes (Other)
  Sender: FDA-Public Use
  Company Number: 28352

PATIENT
  Sex: Male

DRUGS (1)
  1. ALDARA [Suspect]
     Indication: PROMOTION OF WOUND HEALING
     Dosage: 3 IN 1 WEEK(S), TOPICAL
     Route: 061
     Dates: start: 20051129, end: 20051220

REACTIONS (3)
  - APPLICATION SITE ULCER [None]
  - INFLUENZA LIKE ILLNESS [None]
  - MALIGNANT MELANOMA [None]
